FAERS Safety Report 11923540 (Version 2)
Quarter: 2016Q2

REPORT INFORMATION
  Report Type: Spontaneous
  Country: IT (occurrence: IT)
  Receive Date: 20160118
  Receipt Date: 20160401
  Transmission Date: 20160815
  Serious: Yes (Hospitalization)
  Sender: FDA-Public Use
  Company Number: IT-ACCORD-037055

PATIENT
  Age: 61 Year
  Sex: Female

DRUGS (9)
  1. SPIRONOLACTONE W/HYDROCHLOROTHIAZID [Concomitant]
  2. EUTIROX [Concomitant]
     Active Substance: LEVOTHYROXINE SODIUM
     Dosage: STRENGTH: 125 MICROGRAM
  3. ATORVASTATIN [Concomitant]
     Active Substance: ATORVASTATIN
  4. VANCOMYCIN/VANCOMYCIN HYDROCHLORIDE [Concomitant]
  5. LANTUS [Concomitant]
     Active Substance: INSULIN GLARGINE
  6. BENTELAN [Concomitant]
     Active Substance: BETAMETHASONE SODIUM PHOSPHATE
     Dosage: STRENGTH: 4 MG/ 2 ML
  7. LEVETIRACETAM. [Suspect]
     Active Substance: LEVETIRACETAM
     Indication: EPILEPSY
     Route: 048
     Dates: start: 20150521, end: 20150623
  8. FLUCONAZOLE. [Concomitant]
     Active Substance: FLUCONAZOLE
  9. GRANULOCYTE COLONY STIMULATING [Concomitant]
     Active Substance: GRANULOCYTE COLONY-STIMULATING FACTOR NOS

REACTIONS (2)
  - Leukopenia [Recovered/Resolved]
  - Granulocytopenia [Recovered/Resolved]

NARRATIVE: CASE EVENT DATE: 20150617
